FAERS Safety Report 12590563 (Version 1)
Quarter: 2016Q3

REPORT INFORMATION
  Report Type: Spontaneous
  Country: CH (occurrence: CH)
  Receive Date: 20160725
  Receipt Date: 20160725
  Transmission Date: 20161109
  Serious: Yes (Disabling, Other)
  Sender: FDA-Public Use
  Company Number: CH-ASTRAZENECA-2016SE75713

PATIENT
  Age: 61 Year
  Sex: Female

DRUGS (14)
  1. EUTHYROX [Concomitant]
     Active Substance: LEVOTHYROXINE SODIUM
     Route: 048
  2. SPIRICORT [Suspect]
     Active Substance: PREDNISOLONE
     Indication: DERMATOMYOSITIS
     Dosage: 7.5 MG/D, EVERY DAY
     Route: 048
     Dates: start: 201412
  3. SPIRICORT [Suspect]
     Active Substance: PREDNISOLONE
     Indication: DERMATOMYOSITIS
     Dosage: 2.5MG/D, EVERY DAY
     Route: 048
     Dates: start: 201502, end: 201503
  4. PROLIA [Suspect]
     Active Substance: DENOSUMAB
     Indication: OSTEOPOROSIS
     Dosage: 60.0MG UNKNOWN
     Route: 058
     Dates: start: 201103, end: 201303
  5. CALCIMAGON D3 [Concomitant]
     Active Substance: CALCIUM\CHOLECALCIFEROL
     Route: 048
     Dates: start: 201407
  6. PRIVIGEN [Concomitant]
     Active Substance: HUMAN IMMUNOGLOBULIN G
     Dosage: 110 G, SIX/WEEK
     Route: 042
     Dates: start: 20151102
  7. SPIRICORT [Suspect]
     Active Substance: PREDNISOLONE
     Indication: DERMATOMYOSITIS
     Dosage: 20 MG/D, EVERY DAY
     Route: 048
     Dates: start: 201408
  8. CELLCEPT [Concomitant]
     Active Substance: MYCOPHENOLATE MOFETIL\MYCOPHENOLATE MOFETIL HYDROCHLORIDE
     Route: 048
     Dates: start: 20140717
  9. OMEPRAZOL [Suspect]
     Active Substance: OMEPRAZOLE
     Route: 048
     Dates: start: 201606
  10. ACCUPRO [Concomitant]
     Active Substance: QUINAPRIL HYDROCHLORIDE
     Route: 048
     Dates: start: 201407
  11. OMEPRAZOL [Suspect]
     Active Substance: OMEPRAZOLE
     Route: 048
     Dates: start: 201407, end: 201603
  12. OMEPRAZOL [Suspect]
     Active Substance: OMEPRAZOLE
     Route: 048
     Dates: start: 201604, end: 201605
  13. SPIRICORT [Suspect]
     Active Substance: PREDNISOLONE
     Indication: DERMATOMYOSITIS
     Dosage: 30 MG/D, EVERY DAY
     Route: 048
     Dates: start: 201407
  14. SPIRICORT [Suspect]
     Active Substance: PREDNISOLONE
     Indication: DERMATOMYOSITIS
     Dosage: 15 MG/D, EVERY DAY
     Route: 048
     Dates: start: 201410

REACTIONS (6)
  - Lumbar vertebral fracture [Recovered/Resolved with Sequelae]
  - Humerus fracture [Unknown]
  - Thoracic vertebral fracture [Recovered/Resolved with Sequelae]
  - Rebound effect [Recovered/Resolved with Sequelae]
  - Bone density decreased [Not Recovered/Not Resolved]
  - Fall [Unknown]

NARRATIVE: CASE EVENT DATE: 2013
